FAERS Safety Report 8623233-7 (Version None)
Quarter: 2012Q3

REPORT INFORMATION
  Report Type: 
  Country: None (occurrence: None)
  Receive Date: 20120827
  Receipt Date: 20120817
  Transmission Date: 20120928
  Serious: Yes (Hospitalization)
  Sender: FDA-Public Use
  Company Number: US-US-EMD SERONO, INC.-7155922

PATIENT
  Sex: Male

DRUGS (4)
  1. REBIF [Suspect]
     Indication: MULTIPLE SCLEROSIS
     Route: 058
     Dates: start: 20080817
  2. PLAVIX [Concomitant]
     Indication: CEREBROVASCULAR ACCIDENT
  3. ODANSETRON [Concomitant]
     Indication: NAUSEA
  4. PROMETHAZINE [Concomitant]
     Indication: NAUSEA

REACTIONS (5)
  - MULTIPLE SCLEROSIS RELAPSE [None]
  - INJECTION SITE WARMTH [None]
  - INJECTION SITE INDURATION [None]
  - RENAL FAILURE ACUTE [None]
  - HYPOTHYROIDISM [None]
